FAERS Safety Report 6608655-8 (Version None)
Quarter: 2010Q1

REPORT INFORMATION
  Report Type: 
  Country: None (occurrence: None)
  Receive Date: 20100226
  Receipt Date: 20100226
  Transmission Date: 20100710
  Serious: No
  Sender: FDA-Public Use
  Company Number: None

PATIENT
  Age: 54 Year
  Sex: Male
  Weight: 99.3377 kg

DRUGS (7)
  1. CLOZAPINE [Suspect]
     Dosage: 300MG PO
     Route: 048
  2. VALPROIC ACID SYRUP [Concomitant]
  3. MULTIVIT W/ MINERALS [Concomitant]
  4. QUETIAPINE [Concomitant]
  5. CLONIDINE [Concomitant]
  6. DEPAKOTE [Concomitant]
  7. MOXIFLOXACIN [Concomitant]

REACTIONS (5)
  - DIABETES MELLITUS [None]
  - DROOLING [None]
  - MENTAL STATUS CHANGES [None]
  - PYREXIA [None]
  - SEDATION [None]
